FAERS Safety Report 6094049-3 (Version None)
Quarter: 2009Q1

REPORT INFORMATION
  Report Type: 
  Country: None (occurrence: None)
  Receive Date: 20090226
  Receipt Date: 20090223
  Transmission Date: 20090719
  Serious: Yes (Disabling)
  Sender: FDA-Public Use
  Company Number: ES-JNJFOC-20090205542

PATIENT
  Age: 82 Year
  Sex: Male

DRUGS (3)
  1. TAVANIC [Suspect]
     Indication: BRONCHITIS
     Route: 065
  2. TEGRETOL [Concomitant]
     Route: 065
  3. ADIRO [Concomitant]
     Route: 065

REACTIONS (2)
  - ARTHRALGIA [None]
  - MUSCLE SPASTICITY [None]
